FAERS Safety Report 12790083 (Version 2)
Quarter: 2017Q1

REPORT INFORMATION
  Report Type: Spontaneous
  Country: JP (occurrence: JP)
  Receive Date: 20160928
  Receipt Date: 20170327
  Transmission Date: 20170428
  Serious: Yes (Hospitalization, Other)
  Sender: FDA-Public Use
  Company Number: JP-SA-2016SA178360

PATIENT
  Age: 77 Year
  Sex: Female

DRUGS (16)
  1. POVIDONE-IODINE/SUCROSE [Concomitant]
     Route: 065
  2. BEVACIZUMAB [Concomitant]
     Active Substance: BEVACIZUMAB
     Indication: RECTAL CANCER
     Route: 042
     Dates: start: 201303, end: 201303
  3. ELPLAT [Suspect]
     Active Substance: OXALIPLATIN
     Indication: RECTAL CANCER
     Route: 041
     Dates: start: 201303, end: 201303
  4. CALCIUM LEVOFOLINATE [Concomitant]
     Active Substance: LEVOLEUCOVORIN CALCIUM
     Indication: RECTAL CANCER
     Dosage: 250 MG/BODY
     Route: 042
     Dates: start: 201108, end: 201108
  5. 5-FU [Concomitant]
     Active Substance: FLUOROURACIL
     Indication: RECTAL CANCER
     Dosage: 500 MG/BODY BOLUS THEN 3250 MG/BODY/
     Route: 040
     Dates: start: 201303, end: 201303
  6. ELPLAT [Suspect]
     Active Substance: OXALIPLATIN
     Indication: RECTAL CANCER
     Route: 041
     Dates: start: 201108, end: 201108
  7. AVASTIN [Suspect]
     Active Substance: BEVACIZUMAB
     Indication: RECTAL CANCER
     Route: 041
     Dates: start: 201303, end: 201303
  8. BUCLADESINE SODIUM [Concomitant]
     Route: 065
  9. BEVACIZUMAB [Concomitant]
     Active Substance: BEVACIZUMAB
     Indication: RECTAL CANCER
     Route: 042
     Dates: start: 201108, end: 201108
  10. 5-FU [Concomitant]
     Active Substance: FLUOROURACIL
     Indication: RECTAL CANCER
     Dosage: 500 MG/BODY BOLUS THEN 3250 MG/BODY/
     Route: 042
     Dates: start: 201108, end: 201108
  11. TRAFERMIN [Concomitant]
     Active Substance: UNSPECIFIED INGREDIENT
     Route: 055
  12. ALPROSTADIL ALFADEX [Concomitant]
     Active Substance: ALPROSTADIL ALFADEX
     Route: 065
  13. AVASTIN [Suspect]
     Active Substance: BEVACIZUMAB
     Indication: RECTAL CANCER
     Route: 041
     Dates: start: 201108, end: 201108
  14. CALCIUM LEVOFOLINATE [Concomitant]
     Active Substance: LEVOLEUCOVORIN CALCIUM
     Indication: RECTAL CANCER
     Dosage: 250 MG/BODY
     Route: 042
     Dates: start: 201303, end: 201303
  15. 5-FU [Concomitant]
     Active Substance: FLUOROURACIL
     Indication: RECTAL CANCER
     Dosage: 500 MG/BODY BOLUS THEN 3250 MG/BODY/
     Route: 040
     Dates: start: 201108, end: 201108
  16. 5-FU [Concomitant]
     Active Substance: FLUOROURACIL
     Indication: RECTAL CANCER
     Dosage: 500 MG/BODY BOLUS THEN 3250 MG/BODY/
     Route: 042
     Dates: start: 201303, end: 201303

REACTIONS (3)
  - Cardiac failure chronic [Unknown]
  - Skin ulcer [Recovered/Resolved]
  - Impaired healing [Unknown]

NARRATIVE: CASE EVENT DATE: 201204
